FAERS Safety Report 21638446 (Version 2)
Quarter: 2023Q2

REPORT INFORMATION
  Report Type: Spontaneous
  Country: JP (occurrence: None)
  Receive Date: 20221124
  Receipt Date: 20230526
  Transmission Date: 20230722
  Serious: Yes (Hospitalization)
  Sender: FDA-Public Use
  Company Number: 2022A382598

PATIENT
  Age: 92 Year
  Sex: Female
  Weight: 57 kg

DRUGS (16)
  1. ONDEXXYA [Suspect]
     Active Substance: ANDEXANET ALFA
     Indication: Intraventricular haemorrhage
     Dosage: METHOD A: INTRAVENOUS INJECTION 400 MG AT 30 MG/MIN FOLLOWED BY 480 MG AT 4 MG/MIN FOR 2 HOURS
     Route: 042
     Dates: start: 20220822, end: 20220822
  2. XARELTO [Concomitant]
     Active Substance: RIVAROXABAN
     Dosage: DOSE UNKNOWN
     Route: 048
     Dates: end: 20220822
  3. OMEPRAZOLE [Concomitant]
     Active Substance: OMEPRAZOLE
     Dosage: DOSE UNKNOWN
     Route: 042
     Dates: start: 20220822, end: 20220928
  4. NICARDIPINE HYDROCHLORIDE [Concomitant]
     Active Substance: NICARDIPINE HYDROCHLORIDE
     Dosage: DOSE UNKNOWN
     Route: 042
     Dates: start: 20220822, end: 20220824
  5. TRANSAMIN [Concomitant]
     Active Substance: TRANEXAMIC ACID
     Dosage: DOSE UNKNOWN
     Route: 042
     Dates: start: 20220822, end: 20220822
  6. GLYCERIN [Concomitant]
     Active Substance: GLYCERIN
     Dosage: DOSE UNKNOWN
     Route: 042
     Dates: start: 20220822, end: 20220822
  7. FOSPHENYTOIN SODIUM [Concomitant]
     Active Substance: FOSPHENYTOIN SODIUM
     Dosage: DOSE UNKNOWN
     Route: 042
     Dates: start: 20220822, end: 20220822
  8. CEFAZOLIN SODIUM [Concomitant]
     Active Substance: CEFAZOLIN SODIUM
     Dosage: DOSE UNKNOWN
     Route: 042
     Dates: start: 20220822, end: 20220921
  9. NOVORAPID [Concomitant]
     Active Substance: INSULIN ASPART
     Dosage: DOSE UNKNOWN
     Route: 058
     Dates: start: 20220822, end: 20220905
  10. METILDIGOXIN [Concomitant]
     Active Substance: METILDIGOXIN
     Dosage: DOSE UNKNOWN
     Route: 048
  11. LEVOTHYROXINE [Concomitant]
     Active Substance: LEVOTHYROXINE
     Dosage: DOSE UNKNOWN
     Route: 048
  12. CARVEDILOL [Concomitant]
     Active Substance: CARVEDILOL
     Dosage: DOSE UNKNOWN
     Route: 048
  13. VILDAGLIPTIN [Concomitant]
     Active Substance: VILDAGLIPTIN
     Dosage: DOSE UNKNOWN
     Route: 048
  14. AZILSARTAN KAMEDOXOMIL [Concomitant]
     Active Substance: AZILSARTAN KAMEDOXOMIL
     Route: 048
     Dates: start: 20220823
  15. AMLODIPINE [Concomitant]
     Active Substance: AMLODIPINE BESYLATE
     Route: 048
     Dates: start: 20220823
  16. REPAGLINIDE [Concomitant]
     Active Substance: REPAGLINIDE
     Route: 048
     Dates: start: 20220824

REACTIONS (3)
  - Embolism [Recovering/Resolving]
  - Diarrhoea [Unknown]
  - Pyrexia [Unknown]

NARRATIVE: CASE EVENT DATE: 20220101
